FAERS Safety Report 5105105-8 (Version None)
Quarter: 2006Q3

REPORT INFORMATION
  Report Type: 
  Country: None (occurrence: None)
  Receive Date: 20060911
  Receipt Date: 20060829
  Transmission Date: 20061208
  Serious: Yes (Other)
  Sender: FDA-Public Use
  Company Number: 2006105650

PATIENT
  Age: 63 Year
  Sex: Female
  Weight: 75.2971 kg

DRUGS (8)
  1. CHANTIX [Suspect]
     Indication: SMOKING CESSATION THERAPY
     Dosage: 0.5 MG (0.5 MG, 1 IN 1 D)
     Dates: start: 20060828
  2. LIPITOR [Concomitant]
  3. METOPROLOL (METOPROLOL) [Concomitant]
  4. LISINOPRIL W/HYDROCHLOROTHIAZIDE (HYDROCHLOROTHAZIDE, LISINOPRIL) [Concomitant]
  5. ALBUTEROL [Concomitant]
  6. ACETYLALICYLIC ACID (ACETYLSALICYLIC ACID) [Concomitant]
  7. CENTRUM SILVER (ASCORBIC ACID, CALCIUM, MINERALS NOS, RETINOL, TOCOPHE [Concomitant]
  8. HUMULIN N [Concomitant]

REACTIONS (1)
  - BLOOD GLUCOSE DECREASED [None]
